FAERS Safety Report 19277268 (Version 1)
Quarter: 2021Q2

REPORT INFORMATION
  Report Type: Spontaneous
  Country: CN (occurrence: CN)
  Receive Date: 20210519
  Receipt Date: 20210519
  Transmission Date: 20210717
  Serious: Yes (Hospitalization)
  Sender: FDA-Public Use
  Company Number: CN-BAXTER-2021BAX011210

PATIENT
  Age: 44 Year
  Sex: Female

DRUGS (9)
  1. PIRARUBICIN HYDROCHLORIDE [Suspect]
     Active Substance: PIRARUBICIN HYDROCHLORIDE
     Dosage: THIRD CYCLE OF NEO?ADJUVANT CHEMOTHERAPY WITH TAC REGIMEN
     Route: 041
     Dates: start: 20210419, end: 20210419
  2. NAB?PACLITAXEL [Suspect]
     Active Substance: PACLITAXEL
     Dosage: THIRD CYCLE OF NEO?ADJUVANT CHEMOTHERAPY WITH TAC REGIMEN
     Route: 041
     Dates: start: 20210420, end: 20210420
  3. ENDOXAN [Suspect]
     Active Substance: CYCLOPHOSPHAMIDE
     Indication: BREAST CANCER FEMALE
     Dosage: 1 AND 2 CYCLES OF NEO?ADJUVANT CHEMOTHERAPY WITH TAC REGIMEN
     Route: 041
  4. PIRARUBICIN HYDROCHLORIDE [Suspect]
     Active Substance: PIRARUBICIN HYDROCHLORIDE
     Dosage: DOSE RE?INTRODUCED
     Route: 041
  5. NAB?PACLITAXEL [Suspect]
     Active Substance: PACLITAXEL
     Indication: BREAST CANCER FEMALE
     Dosage: 1 AND 2 CYCLES OF NEO?ADJUVANT CHEMOTHERAPY WITH TAC REGIMEN
     Route: 041
  6. ENDOXAN [Suspect]
     Active Substance: CYCLOPHOSPHAMIDE
     Dosage: DOSE RE?INTRODUCED
     Route: 041
  7. ENDOXAN [Suspect]
     Active Substance: CYCLOPHOSPHAMIDE
     Dosage: THIRD CYCLE OF NEO?ADJUVANT CHEMOTHERAPY WITH TAC REGIMEN
     Route: 041
     Dates: start: 20210419, end: 20210419
  8. NAB?PACLITAXEL [Suspect]
     Active Substance: PACLITAXEL
     Dosage: DOSE RE?INTRODUCED
     Route: 041
  9. PIRARUBICIN HYDROCHLORIDE [Suspect]
     Active Substance: PIRARUBICIN HYDROCHLORIDE
     Indication: BREAST CANCER FEMALE
     Dosage: 1 AND 2 CYCLES OF NEO?ADJUVANT CHEMOTHERAPY WITH TAC REGIMEN
     Route: 041

REACTIONS (5)
  - Hepatic function abnormal [Recovering/Resolving]
  - Myelosuppression [Recovering/Resolving]
  - Nausea [Unknown]
  - Gastrooesophageal reflux disease [Recovering/Resolving]
  - Vomiting [Unknown]

NARRATIVE: CASE EVENT DATE: 20210420
